FAERS Safety Report 19082370 (Version 1)
Quarter: 2021Q2

REPORT INFORMATION
  Report Type: Spontaneous
  Country: MY (occurrence: MY)
  Receive Date: 20210401
  Receipt Date: 20210401
  Transmission Date: 20210717
  Serious: Yes (Hospitalization, Other)
  Sender: FDA-Public Use
  Company Number: MY-009507513-2103MYS003465

PATIENT
  Age: 38 Year
  Sex: Female

DRUGS (1)
  1. KEYTRUDA [Suspect]
     Active Substance: PEMBROLIZUMAB
     Indication: BREAST CANCER
     Dosage: UNK UNK, Q3W
     Route: 042
     Dates: start: 20210120

REACTIONS (8)
  - Eyelid ptosis [Recovering/Resolving]
  - Haemoglobin decreased [Unknown]
  - Periorbital oedema [Recovering/Resolving]
  - Skin haemorrhage [Unknown]
  - Swelling [Recovering/Resolving]
  - Herpes zoster [Recovering/Resolving]
  - Pneumonia [Recovering/Resolving]
  - Eye swelling [Recovering/Resolving]

NARRATIVE: CASE EVENT DATE: 202103
